FAERS Safety Report 12113385 (Version 1)
Quarter: 2016Q1

REPORT INFORMATION
  Report Type: Spontaneous
  Country: CA (occurrence: CA)
  Receive Date: 20160225
  Receipt Date: 20160225
  Transmission Date: 20160526
  Serious: Yes (Other)
  Sender: FDA-Public Use
  Company Number: CA-SHIRE-CA201602036

PATIENT
  Age: 98 Month
  Sex: Male
  Weight: 30 kg

DRUGS (2)
  1. INTUNIV [Suspect]
     Active Substance: GUANFACINE HYDROCHLORIDE
     Dosage: 2 MG, UNKNOWN
     Route: 048
  2. INTUNIV [Suspect]
     Active Substance: GUANFACINE HYDROCHLORIDE
     Indication: ATTENTION DEFICIT/HYPERACTIVITY DISORDER
     Dosage: 1 MG, UNKNOWN
     Route: 048

REACTIONS (3)
  - Hypotension [Recovered/Resolved]
  - Psychotic disorder [Recovered/Resolved]
  - Hallucination [Recovered/Resolved]
